FAERS Safety Report 16839749 (Version 1)
Quarter: 2019Q3

REPORT INFORMATION
  Report Type: Spontaneous
  Country: US (occurrence: US)
  Receive Date: 20190923
  Receipt Date: 20190923
  Transmission Date: 20191005
  Serious: Yes (Other)
  Sender: FDA-Public Use
  Company Number: US-AMGEN-USASP2019152222

PATIENT
  Age: 69 Year
  Sex: Female

DRUGS (6)
  1. CLOBETASOL [Concomitant]
     Active Substance: CLOBETASOL
  2. FLUOCINOLONE [Concomitant]
     Active Substance: FLUOCINOLONE
  3. PROLIA [Suspect]
     Active Substance: DENOSUMAB
     Indication: OSTEOPOROSIS POSTMENOPAUSAL
     Dosage: UNK, Q6MO
     Route: 065
  4. FLECAINIDE [Concomitant]
     Active Substance: FLECAINIDE
     Dosage: UNK UNK, QD
  5. TRIAMCINOLONE [Concomitant]
     Active Substance: TRIAMCINOLONE
  6. ALLEGRA [Concomitant]
     Active Substance: FEXOFENADINE HYDROCHLORIDE
     Dosage: UNK UNK, QD

REACTIONS (9)
  - Pain in jaw [Unknown]
  - Endodontic procedure [Unknown]
  - Hyperaesthesia teeth [Not Recovered/Not Resolved]
  - Rash pruritic [Unknown]
  - Arthralgia [Unknown]
  - Muscular weakness [Unknown]
  - Atrial fibrillation [Recovering/Resolving]
  - Pain in extremity [Unknown]
  - Therapeutic product effect incomplete [Unknown]

NARRATIVE: CASE EVENT DATE: 2019
